FAERS Safety Report 6217705-2 (Version None)
Quarter: 2009Q2

REPORT INFORMATION
  Report Type: 
  Country: None (occurrence: None)
  Receive Date: 20090608
  Receipt Date: 20090527
  Transmission Date: 20091009
  Serious: Yes (Other)
  Sender: FDA-Public Use
  Company Number: SE-PFIZER INC-2009213538

PATIENT
  Age: 65 Year

DRUGS (5)
  1. TENORMIN [Suspect]
     Dosage: 25 MG, UNK
     Route: 065
     Dates: start: 20090427, end: 20090511
  2. SIMVASTATIN [Concomitant]
     Dosage: UNK
     Route: 065
  3. TROMBYL [Concomitant]
     Dosage: UNK
     Route: 065
  4. LEVOTHYROXINE SODIUM [Concomitant]
     Dosage: UNK
     Route: 065
  5. TRAMADOL [Concomitant]
     Indication: MYOCARDIAL INFARCTION
     Dosage: UNK
     Route: 065
     Dates: start: 20030101

REACTIONS (4)
  - ANGIOEDEMA [None]
  - BLOOD PRESSURE INCREASED [None]
  - DEPRESSED MOOD [None]
  - DIZZINESS [None]
